FAERS Safety Report 6372818-X (Version None)
Quarter: 2009Q3

REPORT INFORMATION
  Report Type: 
  Country: None (occurrence: None)
  Receive Date: 20090924
  Receipt Date: 20081107
  Transmission Date: 20100115
  Serious: No
  Sender: FDA-Public Use
  Company Number: US-ASTRAZENECA-2008UW25036

PATIENT
  Age: 79 Year
  Sex: Female
  Weight: 72.6 kg

DRUGS (2)
  1. SEROQUEL [Suspect]
     Route: 048
     Dates: end: 20060101
  2. ASPIRIN [Concomitant]

REACTIONS (1)
  - INSOMNIA [None]
